FAERS Safety Report 9504137 (Version 1)
Quarter: 2013Q1

REPORT INFORMATION
  Report Type: Spontaneous
  Country: US (occurrence: None)
  Receive Date: 20130225
  Receipt Date: 20130225
  Transmission Date: 20140127
  Serious: No
  Sender: FDA-Public Use
  Company Number: 364098

PATIENT
  Age: 55 Year
  Sex: Female

DRUGS (2)
  1. VICTOZA (LIRAGLUTIDE) SOLUTION FOR INJECTION, 6MG/ML [Suspect]
     Indication: TYPE 2 DIABETES MELLITUS
     Route: 058
  2. GLIMEPIRIDE [Suspect]
     Indication: TYPE 2 DIABETES MELLITUS
     Dosage: 10MG, 2XDAY, ORAL
     Route: 048

REACTIONS (6)
  - Mobility decreased [None]
  - Hernia [None]
  - Dysgeusia [None]
  - Decreased appetite [None]
  - Flatulence [None]
  - Vomiting [None]
